FAERS Safety Report 5049854-9 (Version None)
Quarter: 2006Q3

REPORT INFORMATION
  Report Type: 
  Country: None (occurrence: None)
  Receive Date: 20060706
  Receipt Date: 20060621
  Transmission Date: 20061208
  Serious: Yes (Other)
  Sender: FDA-Public Use
  Company Number: 226561

PATIENT
  Age: 57 Year
  Sex: Female

DRUGS (9)
  1. RITUXIMAB (RITUXIMAB) CONC FOR SOLUTION FOR INDFUSION [Suspect]
     Indication: RHEUMATOID ARTHRITIS
     Dosage: 1000 MG, DAYS 1+15, INTRAVENOUS
     Route: 042
     Dates: start: 20060104, end: 20060117
  2. PREDNISONE TAB [Suspect]
     Indication: RHEUMATOID ARTHRITIS
     Dosage: ORAL
     Route: 048
     Dates: start: 20060104, end: 20060119
  3. METHYLPREDNISOLONE [Suspect]
     Indication: RHEUMATOID ARTHRITIS
     Dosage: 100 MG, DAYS 1+15, INTRAVENOUS
     Route: 042
     Dates: start: 20060104, end: 20060117
  4. METHOTREXATE [Concomitant]
  5. CELEXA [Concomitant]
  6. LEVOXYL [Concomitant]
  7. TOPAMAX [Concomitant]
  8. CRESTOR [Concomitant]
  9. FOLATE (FOLATE SODIUM) [Concomitant]

REACTIONS (1)
  - MALIGNANT MELANOMA IN SITU [None]
